FAERS Safety Report 7679559-7 (Version None)
Quarter: 2011Q3

REPORT INFORMATION
  Report Type: 
  Country: None (occurrence: None)
  Receive Date: 20110812
  Receipt Date: 20110802
  Transmission Date: 20111222
  Serious: Yes (Other)
  Sender: FDA-Public Use
  Company Number: US-ENDO PHARMACEUTICALS INC.-ENDC20110210

PATIENT
  Sex: Female
  Weight: 72.64 kg

DRUGS (2)
  1. ENDOCET 10MG/650MG [Suspect]
     Indication: PAIN
     Dosage: 80/5200 MG
     Route: 048
     Dates: start: 20090101
  2. ENDOCET 10MG/650MG [Suspect]
     Dosage: 10/325
     Route: 048
     Dates: start: 20090101

REACTIONS (3)
  - LOSS OF CONSCIOUSNESS [None]
  - ABDOMINAL PAIN UPPER [None]
  - HEADACHE [None]
